FAERS Safety Report 11823619 (Version 2)
Quarter: 2015Q4

REPORT INFORMATION
  Report Type: Spontaneous
  Country: US (occurrence: US)
  Receive Date: 20151210
  Receipt Date: 20151229
  Transmission Date: 20160305
  Serious: No
  Sender: FDA-Public Use
  Company Number: US-PFIZER INC-2015428276

PATIENT
  Age: 84 Year
  Sex: Female
  Weight: 65.77 kg

DRUGS (2)
  1. LYRICA [Suspect]
     Active Substance: PREGABALIN
     Dosage: 75 MG, 2X/DAY (IN THE MORNING AND AT NIGHT)
  2. LYRICA [Suspect]
     Active Substance: PREGABALIN
     Indication: FIBROMYALGIA
     Dosage: 50 MG, 2X/DAY (IN THE MORNING AND AT NIGHT)

REACTIONS (6)
  - Stomatitis [Recovered/Resolved]
  - Hypersensitivity [Unknown]
  - Body height decreased [Unknown]
  - Constipation [Unknown]
  - Aphonia [Unknown]
  - Dry mouth [Not Recovered/Not Resolved]
